FAERS Safety Report 8509169 (Version 4)
Quarter: 2013Q3

REPORT INFORMATION
  Report Type: Spontaneous
  Country: US (occurrence: US)
  Receive Date: 20120412
  Receipt Date: 20130903
  Transmission Date: 20140515
  Serious: Yes (Other)
  Sender: FDA-Public Use
  Company Number: US-ASTRAZENECA-2011SE46083

PATIENT
  Age: 47 Year
  Sex: Female
  Weight: 99.8 kg

DRUGS (15)
  1. NEXIUM [Suspect]
     Indication: GASTROOESOPHAGEAL REFLUX DISEASE
     Route: 048
  2. NEXIUM [Suspect]
     Indication: THROAT IRRITATION
     Route: 048
  3. NEXIUM [Suspect]
     Indication: REGURGITATION
     Route: 048
  4. NEXIUM [Suspect]
     Indication: DYSPEPSIA
     Route: 048
  5. NEXIUM [Suspect]
     Indication: DYSPEPSIA
     Route: 048
  6. OMEPRAZOLE [Suspect]
     Route: 048
  7. LYRICE [Concomitant]
  8. ZOCOR [Concomitant]
  9. CYMBALTA [Concomitant]
  10. HYDROTHYCHLORIZIDE [Concomitant]
  11. NEUROTIN [Concomitant]
  12. ZYRTEC [Concomitant]
  13. HYDROXIZINE [Concomitant]
  14. ABILIFY [Concomitant]
  15. REMERON [Concomitant]

REACTIONS (22)
  - Ankle fracture [Unknown]
  - Road traffic accident [Unknown]
  - Brain injury [Unknown]
  - Hearing impaired [Unknown]
  - Visual impairment [Unknown]
  - Type 2 diabetes mellitus [Unknown]
  - Memory impairment [Unknown]
  - Gastric disorder [Unknown]
  - Head injury [Unknown]
  - Adverse event [Unknown]
  - Activities of daily living impaired [Unknown]
  - Feeling abnormal [Unknown]
  - Discomfort [Unknown]
  - Asthenia [Unknown]
  - Regurgitation [Unknown]
  - Throat irritation [Unknown]
  - Malaise [Unknown]
  - Vomiting [Unknown]
  - Confusional state [Unknown]
  - Dyspepsia [Not Recovered/Not Resolved]
  - Dyspepsia [Unknown]
  - Drug dose omission [Unknown]
